FAERS Safety Report 8757722 (Version 2)
Quarter: 2013Q4

REPORT INFORMATION
  Report Type: Report from Study
  Country: AT (occurrence: AT)
  Receive Date: 20120828
  Receipt Date: 20131120
  Transmission Date: 20140711
  Serious: Yes (Hospitalization, Other)
  Sender: FDA-Public Use
  Company Number: AT-ROCHE-CID000000002130428

PATIENT
  Sex: 0

DRUGS (6)
  1. BEVACIZUMAB [Suspect]
     Indication: BRAIN NEOPLASM
     Route: 042
  2. THALIDOMIDE [Suspect]
     Indication: BRAIN NEOPLASM
     Route: 048
  3. CELECOXIB [Suspect]
     Indication: BRAIN NEOPLASM
     Route: 048
  4. FENOFIBRATE [Suspect]
     Indication: BRAIN NEOPLASM
     Route: 048
  5. ETOPOSIDE [Suspect]
     Indication: BRAIN NEOPLASM
     Route: 048
  6. CYCLOPHOSPHAMIDE [Suspect]
     Indication: BRAIN NEOPLASM
     Route: 065

REACTIONS (6)
  - Pneumonia [Unknown]
  - Neutropenia [Unknown]
  - Lymphopenia [Unknown]
  - Proteinuria [Unknown]
  - Deep vein thrombosis [Unknown]
  - Hypothyroidism [Unknown]
